FAERS Safety Report 8961700 (Version 1)
Quarter: 2012Q4

REPORT INFORMATION
  Report Type: 
  Country: JP (occurrence: JP)
  Receive Date: 20121213
  Receipt Date: 20121213
  Transmission Date: 20130627
  Serious: Yes (Hospitalization)
  Sender: FDA-Public Use
  Company Number: PHHY2012JP109491

PATIENT
  Age: 70 Year
  Sex: Female

DRUGS (28)
  1. DIOVAN [Suspect]
     Dosage: 2 DF (40mg tablet), BID
     Route: 048
  2. MERISLON [Concomitant]
     Dosage: 36 mg, UNK
     Route: 048
  3. MERISLON [Concomitant]
     Dosage: 9 DF, UNK
  4. SELBEX [Concomitant]
     Dosage: 9 DF, UNK
     Route: 048
  5. ACINON [Concomitant]
     Dosage: 300 mg, UNK
     Route: 048
  6. MUCODYNE [Concomitant]
     Dosage: 1500 mg, UNK
     Route: 048
  7. SOLANAX [Concomitant]
     Dosage: 3.6 mg, UNK
  8. SOLANAX [Concomitant]
     Dosage: 1 DF, UNK
  9. ALLEGRA [Concomitant]
     Dosage: 4 DF, UNK
     Route: 048
  10. PLETAAL [Concomitant]
     Dosage: 400 mg, UNK
     Route: 048
  11. BLOPRESS [Concomitant]
     Dosage: 36 mg, UNK
  12. BLOPRESS [Concomitant]
     Dosage: 8 mg, UNK
  13. LOXONIN [Concomitant]
     Dosage: 9 DF, UNK
     Route: 048
  14. CHOTOSAN [Concomitant]
     Route: 048
  15. KAKKONTOU [Concomitant]
     Route: 048
  16. MYONAL [Concomitant]
     Dosage: 9 DF, UNK
     Route: 048
  17. ALITHIA [Concomitant]
     Dosage: 8 DF, UNK
     Route: 048
  18. COBALOKININ [Concomitant]
     Dosage: 4 DF, UNK
     Route: 048
  19. EVISTA [Concomitant]
     Dosage: 1 DF, UNK
     Route: 048
  20. TERNELIN [Concomitant]
     Dosage: 9 mg, UNK
     Route: 048
  21. SOLETON [Concomitant]
     Dosage: 9 DF, UNK
     Route: 048
  22. MAGNESIUM OXIDE [Concomitant]
     Dosage: 0.5 g, UNK
  23. MAGNESIUM OXIDE [Concomitant]
     Dosage: 1 g, UNK
  24. BIOFERMIN [Concomitant]
     Dosage: 9 DF, UNK
     Route: 048
  25. NORVASC [Concomitant]
     Dosage: 10 mg, UNK
     Route: 048
  26. KEISHITO [Concomitant]
     Route: 048
  27. ADALAT CR [Concomitant]
     Dosage: 80 mg, UNK
     Route: 048
  28. HANGEKOBOKUTO [Concomitant]
     Route: 048

REACTIONS (1)
  - Asthenia [Unknown]
